FAERS Safety Report 11626607 (Version 10)
Quarter: 2016Q2

REPORT INFORMATION
  Report Type: Spontaneous
  Country: JP (occurrence: JP)
  Receive Date: 20151013
  Receipt Date: 20160628
  Transmission Date: 20160815
  Serious: Yes (Death, Other)
  Sender: FDA-Public Use
  Company Number: JP-OTSUKA-2015_011471

PATIENT
  Age: 57 Year
  Sex: Male
  Weight: 95 kg

DRUGS (35)
  1. ABILIFY MAINTENA [Suspect]
     Active Substance: ARIPIPRAZOLE
     Indication: SCHIZOPHRENIA
     Dosage: 400MG, QM
     Route: 030
     Dates: start: 20150806, end: 20151001
  2. ABILIFY MAINTENA [Suspect]
     Active Substance: ARIPIPRAZOLE
     Dosage: 300MG, QM
     Route: 030
     Dates: start: 20150903, end: 20150903
  3. HIRNAMIN [Suspect]
     Active Substance: PHENOTHIAZINE
     Indication: AGITATION
     Dosage: 25 MG, QD
     Route: 048
     Dates: start: 20150928, end: 20150928
  4. MEILAX [Concomitant]
     Active Substance: ETHYL LOFLAZEPATE
     Dosage: 1 MG, QD
     Route: 048
  5. MEILAX [Concomitant]
     Active Substance: ETHYL LOFLAZEPATE
     Dosage: 1 MG, QD
     Route: 048
     Dates: start: 20150903
  6. RISPERDAL [Concomitant]
     Active Substance: RISPERIDONE
     Indication: PRODUCT USED FOR UNKNOWN INDICATION
     Dosage: 37.5 MG, QD
     Route: 030
  7. RISPERDAL [Concomitant]
     Active Substance: RISPERIDONE
     Dosage: 25 MG, QD
     Route: 048
     Dates: start: 20150723
  8. CO-DIOVAN [Concomitant]
     Active Substance: HYDROCHLOROTHIAZIDE\VALSARTAN
     Dosage: 1 TAB, QD
     Route: 048
     Dates: start: 20150723
  9. HIRNAMIN [Suspect]
     Active Substance: PHENOTHIAZINE
     Indication: AGGRESSION
     Dosage: 25 MG, BID
     Route: 048
     Dates: start: 20150929, end: 20150930
  10. AKINETON [Concomitant]
     Active Substance: BIPERIDEN HYDROCHLORIDE
     Indication: PRODUCT USED FOR UNKNOWN INDICATION
     Dosage: UNK
     Route: 065
  11. CO-DIOVAN [Concomitant]
     Active Substance: HYDROCHLOROTHIAZIDE\VALSARTAN
     Dosage: 1 TAB, QD
     Route: 048
  12. CO-DIOVAN [Concomitant]
     Active Substance: HYDROCHLOROTHIAZIDE\VALSARTAN
     Dosage: 1 DF, QD
     Dates: start: 20150929, end: 20150930
  13. MEILAX [Concomitant]
     Active Substance: ETHYL LOFLAZEPATE
     Dosage: UNK, 1MG/DAY
     Route: 048
     Dates: start: 20150806
  14. FLUNITRAZEPAM [Concomitant]
     Active Substance: FLUNITRAZEPAM
     Dosage: UNK, 1MG/DAY
     Route: 048
     Dates: start: 20150806
  15. KAMAG G [Concomitant]
     Active Substance: MAGNESIUM OXIDE
     Indication: PRODUCT USED FOR UNKNOWN INDICATION
     Dosage: 500MGX2, AS NEEDED
     Route: 048
  16. RISPERDAL [Concomitant]
     Active Substance: RISPERIDONE
     Dosage: 37.5 MG, QD
     Route: 048
  17. AKINETON [Concomitant]
     Active Substance: BIPERIDEN HYDROCHLORIDE
     Dosage: 1 MG, QD
     Route: 065
     Dates: start: 20150929, end: 20150930
  18. MEILAX [Concomitant]
     Active Substance: ETHYL LOFLAZEPATE
     Dosage: 1 MG, QD
     Route: 048
     Dates: start: 20150723
  19. MEILAX [Concomitant]
     Active Substance: ETHYL LOFLAZEPATE
     Dosage: 1 MG, QD
     Route: 048
     Dates: start: 20150928, end: 20150930
  20. FLUNITRAZEPAM [Concomitant]
     Active Substance: FLUNITRAZEPAM
     Indication: PRODUCT USED FOR UNKNOWN INDICATION
     Dosage: 1 MG, QD
     Route: 048
  21. FLUNITRAZEPAM [Concomitant]
     Active Substance: FLUNITRAZEPAM
     Dosage: 1 MG, QD
     Route: 048
     Dates: start: 20150723
  22. ABILIFY [Concomitant]
     Active Substance: ARIPIPRAZOLE
     Indication: SCHIZOPHRENIA
     Dosage: 12 MG, QD
     Route: 048
     Dates: start: 20150723, end: 20150723
  23. ABILIFY [Concomitant]
     Active Substance: ARIPIPRAZOLE
     Dosage: 12 MG, QD
     Route: 048
     Dates: start: 20150929, end: 20150930
  24. KAMAG G [Concomitant]
     Active Substance: MAGNESIUM OXIDE
     Dosage: UNK, PRN
     Route: 048
  25. ABILIFY MAINTENA [Suspect]
     Active Substance: ARIPIPRAZOLE
     Dosage: 400MG, QM
     Route: 030
     Dates: start: 20150929, end: 20150929
  26. CO-DIOVAN [Concomitant]
     Active Substance: HYDROCHLOROTHIAZIDE\VALSARTAN
     Dosage: 1 TAB, QD
     Route: 048
     Dates: start: 20150903
  27. FLUNITRAZEPAM [Concomitant]
     Active Substance: FLUNITRAZEPAM
     Dosage: 1 MG, QD
     Route: 048
  28. FLUNITRAZEPAM [Concomitant]
     Active Substance: FLUNITRAZEPAM
     Dosage: 1 MG, QD
     Route: 048
     Dates: start: 20150903
  29. FLUNITRAZEPAM [Concomitant]
     Active Substance: FLUNITRAZEPAM
     Dosage: 1 MG, QD
     Route: 048
     Dates: start: 20150928, end: 20150930
  30. HIRNAMIN [Suspect]
     Active Substance: PHENOTHIAZINE
     Indication: AGITATION
     Dosage: 50 MG, QD
     Route: 030
     Dates: start: 20150928, end: 20150928
  31. ABILIFY [Concomitant]
     Active Substance: ARIPIPRAZOLE
     Dosage: 12 MG, QD
     Route: 048
     Dates: start: 20150806, end: 20150806
  32. RISPERIDONE. [Concomitant]
     Active Substance: RISPERIDONE
     Indication: PRODUCT USED FOR UNKNOWN INDICATION
     Dosage: 2MG, AS NEEDED
     Route: 048
  33. MEILAX [Concomitant]
     Active Substance: ETHYL LOFLAZEPATE
     Indication: PRODUCT USED FOR UNKNOWN INDICATION
     Dosage: 1 MG, QD
     Route: 048
  34. HIRNAMIN [Suspect]
     Active Substance: PHENOTHIAZINE
     Indication: AGGRESSION
  35. CO-DIOVAN [Concomitant]
     Active Substance: HYDROCHLOROTHIAZIDE\VALSARTAN
     Indication: PRODUCT USED FOR UNKNOWN INDICATION
     Dosage: 1 TAB, QD
     Route: 048

REACTIONS (4)
  - Sudden death [Fatal]
  - Agitation [Unknown]
  - Epilepsy [Unknown]
  - Cardiac failure acute [Fatal]

NARRATIVE: CASE EVENT DATE: 20151001
